FAERS Safety Report 24466427 (Version 1)
Quarter: 2024Q4

REPORT INFORMATION
  Report Type: Spontaneous
  Country: GB (occurrence: GB)
  Receive Date: 20241018
  Receipt Date: 20241018
  Transmission Date: 20250115
  Serious: Yes (Other)
  Sender: PFIZER
  Company Number: None

PATIENT
  Age: 42 Year
  Sex: Female

DRUGS (2)
  1. SULFASALAZINE [Suspect]
     Active Substance: SULFASALAZINE
     Indication: Rheumatoid arthritis
     Dosage: 500 MG, DAILY (500MG DAILY WEEK ONE AND 500MG TWICE DAILY WEEK 2.)
     Dates: start: 20240927, end: 20241010
  2. SULFASALAZINE [Suspect]
     Active Substance: SULFASALAZINE
     Dosage: 500 MG, 2X/DAY  (500MG DAILY WEEK ONE AND 500MG TWICE DAILY WEEK 2.)
     Dates: start: 20241004

REACTIONS (7)
  - Musculoskeletal stiffness [Recovering/Resolving]
  - Muscle spasms [Recovering/Resolving]
  - Lymphadenopathy [Recovered/Resolved]
  - Mouth ulceration [Recovering/Resolving]
  - Rash erythematous [Recovered/Resolved]
  - Neck pain [Recovering/Resolving]
  - Dyspepsia [Recovering/Resolving]

NARRATIVE: CASE EVENT DATE: 20240101
